FAERS Safety Report 5105476-2 (Version None)
Quarter: 2006Q3

REPORT INFORMATION
  Report Type: 
  Country: None (occurrence: None)
  Receive Date: 20060915
  Receipt Date: 20060817
  Transmission Date: 20061208
  Serious: No
  Sender: FDA-Public Use
  Company Number: US-GLAXOSMITHKLINE-A0617115A

PATIENT
  Age: 75 Year
  Sex: Female

DRUGS (5)
  1. AVANDARYL [Suspect]
     Route: 048
     Dates: start: 20060810
  2. LEXXEL [Concomitant]
  3. GLUCOPHAGE [Concomitant]
  4. LIPITOR [Concomitant]
  5. ZETIA [Concomitant]

REACTIONS (1)
  - MUSCLE SPASMS [None]
